FAERS Safety Report 6411540-8 (Version None)
Quarter: 2009Q4

REPORT INFORMATION
  Report Type: 
  Country: None (occurrence: None)
  Receive Date: 20091021
  Receipt Date: 20091021
  Transmission Date: 20100525
  Serious: Yes (Life-Threatening)
  Sender: FDA-Public Use
  Company Number: None

PATIENT
  Sex: Female
  Weight: 87.0906 kg

DRUGS (6)
  1. TAMIFLU [Suspect]
     Indication: INFLUENZA
     Dosage: 75 MG 2X DAY 10 CAP
     Dates: start: 20090927, end: 20091002
  2. PREDNISONE [Concomitant]
  3. ASTHMA THERAPY IN HOSPITAL [Concomitant]
  4. PAIN MEDICINE [Concomitant]
  5. ALBUTEROL [Concomitant]
  6. CHEST XRAY [Concomitant]

REACTIONS (14)
  - ABDOMINAL PAIN UPPER [None]
  - CHEST DISCOMFORT [None]
  - CHEST PAIN [None]
  - HALLUCINATION [None]
  - HEART RATE INCREASED [None]
  - INFECTION [None]
  - INSOMNIA [None]
  - LOCAL SWELLING [None]
  - MOOD SWINGS [None]
  - PAIN [None]
  - PHARYNGEAL OEDEMA [None]
  - RASH [None]
  - SWELLING FACE [None]
  - TREMOR [None]
